FAERS Safety Report 8343659-9 (Version None)
Quarter: 2012Q2

REPORT INFORMATION
  Report Type: 
  Country: None (occurrence: None)
  Receive Date: 20120508
  Receipt Date: 20100728
  Transmission Date: 20120825
  Serious: No
  Sender: FDA-Public Use
  Company Number: US-TEVA-2010003969

PATIENT
  Age: 63 Year
  Sex: Male

DRUGS (1)
  1. TREANDA [Suspect]
     Indication: CHRONIC LYMPHOCYTIC LEUKAEMIA
     Route: 042
     Dates: start: 20100501, end: 20100501

REACTIONS (8)
  - LACRIMATION INCREASED [None]
  - HEADACHE [None]
  - BLISTER [None]
  - FATIGUE [None]
  - DIPLOPIA [None]
  - PYREXIA [None]
  - DYSPNOEA [None]
  - ASTHENIA [None]
